FAERS Safety Report 5603823-6 (Version None)
Quarter: 2008Q1

REPORT INFORMATION
  Report Type: 
  Country: None (occurrence: None)
  Receive Date: 20080124
  Receipt Date: 20080124
  Transmission Date: 20080703
  Serious: Yes (Death)
  Sender: FDA-Public Use
  Company Number: None

PATIENT
  Age: 91 Year
  Sex: Female
  Weight: 48.5349 kg

DRUGS (1)
  1. SEROQUEL [Suspect]
     Indication: DISORIENTATION
     Dosage: 25MG 1 TABLET PR DAY PO
     Route: 048
     Dates: start: 20070806, end: 20070811

REACTIONS (1)
  - DEATH [None]
